FAERS Safety Report 8343178-X (Version None)
Quarter: 2012Q1

REPORT INFORMATION
  Report Type: 
  Country: None (occurrence: None)
  Receive Date: 20120330
  Receipt Date: 20110613
  Transmission Date: 20120608
  Serious: Yes (Other)
  Sender: FDA-Public Use
  Company Number: PHHY2011US44916

PATIENT
  Age: 79 Year
  Sex: Male

DRUGS (4)
  1. EXELON [Suspect]
     Indication: DEMENTIA
     Dosage: 4.6 MG, PER 24 HR, TRANSDERMAL
     Route: 062
     Dates: start: 20110418, end: 20110516
  2. SYNTHROID [Concomitant]
  3. PROMAX (CLOBETASOL PROPIONATE) [Concomitant]
  4. LEXAPRO [Concomitant]

REACTIONS (2)
  - APPLICATION SITE PRURITUS [None]
  - APPLICATION SITE RASH [None]
